FAERS Safety Report 4696120-7 (Version None)
Quarter: 2005Q2

REPORT INFORMATION
  Report Type: 
  Country: None (occurrence: None)
  Receive Date: 20050620
  Receipt Date: 20050613
  Transmission Date: 20051028
  Serious: Yes (Hospitalization)
  Sender: FDA-Public Use
  Company Number: 2005-06-0821

PATIENT
  Age: 28 Year
  Sex: Male
  Weight: 87 kg

DRUGS (4)
  1. TEMOXOL (TEMOZOLOMIDE ) LIKE TEMODAR   CAPSULES [Suspect]
     Indication: ASTROCYTOMA
     Dosage: SEE IMAGE
     Route: 048
     Dates: start: 20050413
  2. TEMOXOL (TEMOZOLOMIDE ) LIKE TEMODAR   CAPSULES [Suspect]
     Indication: ASTROCYTOMA
     Dosage: SEE IMAGE
     Route: 048
     Dates: start: 20050413
  3. TEMOXOL (TEMOZOLOMIDE ) LIKE TEMODAR   CAPSULES [Suspect]
     Indication: ASTROCYTOMA
     Dosage: SEE IMAGE
     Route: 048
     Dates: start: 20050501
  4. EPILIM TABLETS [Concomitant]

REACTIONS (4)
  - HEADACHE [None]
  - MIGRAINE [None]
  - RASH ERYTHEMATOUS [None]
  - RASH PRURITIC [None]
